FAERS Safety Report 5347614-2 (Version None)
Quarter: 2007Q2

REPORT INFORMATION
  Report Type: 
  Country: None (occurrence: None)
  Receive Date: 20070606
  Receipt Date: 20070530
  Transmission Date: 20071010
  Serious: Yes (Other)
  Sender: FDA-Public Use
  Company Number: GB-BRISTOL-MYERS SQUIBB COMPANY-13797972

PATIENT
  Age: 35 Year
  Sex: Female

DRUGS (2)
  1. ARIPIPRAZOLE [Suspect]
     Indication: SCHIZOAFFECTIVE DISORDER
  2. AMISULPRIDE [Concomitant]
     Indication: SCHIZOAFFECTIVE DISORDER

REACTIONS (3)
  - ANXIETY [None]
  - HALLUCINATION [None]
  - PSYCHOTIC DISORDER [None]
